FAERS Safety Report 9240134 (Version 1)
Quarter: 2013Q2

REPORT INFORMATION
  Report Type: Spontaneous
  Country: US (occurrence: None)
  Receive Date: 20130418
  Receipt Date: 20130418
  Transmission Date: 20140414
  Serious: No
  Sender: FDA-Public Use
  Company Number: None

PATIENT
  Age: 52 Year
  Sex: Male

DRUGS (2)
  1. SNORESTOP 120 FAST-ACTING EXTINGUISHER THROAT [Suspect]
     Dosage: 7 DAYS-EXT
  2. SNORESTOP 30 FASTTABS [Suspect]
     Dosage: 7 DAYS-TABS

REACTIONS (1)
  - Vertigo [None]
